FAERS Safety Report 20938358 (Version 1)
Quarter: 2022Q2

REPORT INFORMATION
  Report Type: Spontaneous
  Country: US (occurrence: None)
  Receive Date: 20220608
  Receipt Date: 20220608
  Transmission Date: 20220721
  Serious: Yes (Other)
  Sender: FDA-Public Use
  Company Number: None

PATIENT
  Sex: Female

DRUGS (2)
  1. BETASERON [Suspect]
     Active Substance: INTERFERON BETA-1B
  2. BETASERON [Concomitant]
     Active Substance: INTERFERON BETA-1B

REACTIONS (2)
  - Illness [None]
  - Multiple sclerosis relapse [None]
